FAERS Safety Report 8287897-2 (Version None)
Quarter: 2012Q2

REPORT INFORMATION
  Report Type: 
  Country: None (occurrence: None)
  Receive Date: 20120416
  Receipt Date: 20120406
  Transmission Date: 20120825
  Serious: Yes (Death)
  Sender: FDA-Public Use
  Company Number: US-ROCHE-1035116

PATIENT
  Sex: Male

DRUGS (1)
  1. AVASTIN [Suspect]
     Indication: METASTATIC RENAL CELL CARCINOMA
     Dosage: LAST DOSE PRIOR TO EVENT:31/JAN/2006

REACTIONS (3)
  - METASTATIC NEOPLASM [None]
  - RESPIRATORY FAILURE [None]
  - DEHYDRATION [None]
